FAERS Safety Report 18165742 (Version 6)
Quarter: 2021Q3

REPORT INFORMATION
  Report Type: Report from Study
  Country: CA (occurrence: CA)
  Receive Date: 20200818
  Receipt Date: 20210719
  Transmission Date: 20211014
  Serious: Yes (Death, Hospitalization)
  Sender: FDA-Public Use
  Company Number: CA-EISAI MEDICAL RESEARCH-EC-2020-079080

PATIENT
  Age: 71 Year
  Sex: Female
  Weight: 76.4 kg

DRUGS (11)
  1. LENVATINIB [Suspect]
     Active Substance: LENVATINIB
     Dosage: STARTING DOSE OF 14 MILLIGRAM (FLUCTUATING DOSE)
     Route: 048
     Dates: start: 20200818
  2. PERINDOPRIL [Concomitant]
     Active Substance: PERINDOPRIL
     Dates: start: 20200730
  3. AMLODIPINE [Concomitant]
     Active Substance: AMLODIPINE BESYLATE
     Dates: start: 20200709, end: 20200903
  4. LENVATINIB [Suspect]
     Active Substance: LENVATINIB
     Indication: ENDOMETRIAL CANCER
     Route: 048
     Dates: start: 20200729, end: 20200810
  5. PEMBROLIZUMAB. [Suspect]
     Active Substance: PEMBROLIZUMAB
     Route: 041
     Dates: start: 20200818
  6. PERINDOPRIL [Concomitant]
     Active Substance: PERINDOPRIL
     Dates: start: 20200720, end: 20200729
  7. AMIODARONE [Concomitant]
     Active Substance: AMIODARONE
     Dates: start: 202001
  8. PANTOPRAZOLE [Concomitant]
     Active Substance: PANTOPRAZOLE
     Dates: start: 202001
  9. PEMBROLIZUMAB. [Suspect]
     Active Substance: PEMBROLIZUMAB
     Indication: ENDOMETRIAL CANCER
     Route: 041
     Dates: start: 20200729, end: 20200729
  10. BISOPROLOL [Concomitant]
     Active Substance: BISOPROLOL
     Dates: start: 202001
  11. APIXABAN [Concomitant]
     Active Substance: APIXABAN
     Dates: start: 202001

REACTIONS (1)
  - Tremor [Recovered/Resolved with Sequelae]

NARRATIVE: CASE EVENT DATE: 20200808
